FAERS Safety Report 14248486 (Version 2)
Quarter: 2017Q4

REPORT INFORMATION
  Report Type: Report from Study
  Country: KR (occurrence: KR)
  Receive Date: 20171204
  Receipt Date: 20171206
  Transmission Date: 20180321
  Serious: Yes (Other)
  Sender: FDA-Public Use
  Company Number: KR-009507513-1712KOR000250

PATIENT
  Age: 44 Year
  Sex: Male
  Weight: 92 kg

DRUGS (6)
  1. POSACONAZOLE [Suspect]
     Active Substance: POSACONAZOLE
     Dosage: 300 MG, ONCE A DAY
     Route: 048
     Dates: start: 20171125
  2. VESANOID [Suspect]
     Active Substance: TRETINOIN
     Indication: ACUTE PROMYELOCYTIC LEUKAEMIA
     Dosage: 40 MG, QD
     Route: 048
     Dates: start: 20171124, end: 20171127
  3. VESANOID [Suspect]
     Active Substance: TRETINOIN
     Dosage: 50 MG, QD
     Route: 048
     Dates: start: 20171124, end: 20171126
  4. ALLOPURINOL. [Concomitant]
     Active Substance: ALLOPURINOL
     Indication: PROPHYLAXIS
     Dosage: 100 MG, TID
     Route: 048
     Dates: start: 20171122
  5. PENIRAMIN [Concomitant]
     Indication: PROPHYLAXIS
     Dosage: 2 ML, QD
     Route: 042
     Dates: start: 20171124, end: 20171124
  6. POSACONAZOLE [Suspect]
     Active Substance: POSACONAZOLE
     Indication: ANTIFUNGAL PROPHYLAXIS
     Dosage: 300 MG, TWICE A DAY
     Route: 048
     Dates: start: 20171124, end: 20171124

REACTIONS (2)
  - Acute promyelocytic leukaemia differentiation syndrome [Not Recovered/Not Resolved]
  - Haematemesis [Recovered/Resolved with Sequelae]

NARRATIVE: CASE EVENT DATE: 20171126
